FAERS Safety Report 6119428-7 (Version None)
Quarter: 2009Q1

REPORT INFORMATION
  Report Type: 
  Country: None (occurrence: None)
  Receive Date: 20090316
  Receipt Date: 20090306
  Transmission Date: 20090719
  Serious: Yes (Death, Hospitalization)
  Sender: FDA-Public Use
  Company Number: A0772850A

PATIENT
  Age: 71 Year
  Sex: Female
  Weight: 96.8 kg

DRUGS (5)
  1. AVANDIA [Suspect]
     Indication: DIABETES MELLITUS
     Dosage: 8MG PER DAY
     Route: 048
     Dates: start: 20051213
  2. COLCHICINE [Concomitant]
  3. POTASSIUM CHLORIDE [Concomitant]
  4. TIMOLOL MALEATE [Concomitant]
  5. LOTREL [Concomitant]

REACTIONS (3)
  - CARDIAC FAILURE CONGESTIVE [None]
  - DEATH [None]
  - DEEP VEIN THROMBOSIS [None]
